FAERS Safety Report 12940900 (Version 1)
Quarter: 2016Q4

REPORT INFORMATION
  Report Type: Spontaneous
  Country: US (occurrence: US)
  Receive Date: 20161115
  Receipt Date: 20161115
  Transmission Date: 20170207
  Serious: Yes (Hospitalization)
  Sender: FDA-Public Use
  Company Number: None

PATIENT
  Age: 77 Year
  Sex: Female
  Weight: 71 kg

DRUGS (10)
  1. GLIMEPIRIDE. [Suspect]
     Active Substance: GLIMEPIRIDE
     Dosage: CHRONIC
  2. ALBUTEROL. [Concomitant]
     Active Substance: ALBUTEROL
  3. AMLODIPINE [Concomitant]
     Active Substance: AMLODIPINE BESYLATE
  4. CLONOPIN [Concomitant]
     Active Substance: CLONAZEPAM
  5. CYANOCOBALAMIN. [Concomitant]
     Active Substance: CYANOCOBALAMIN
  6. GLYBURIDE. [Suspect]
     Active Substance: GLYBURIDE
     Dosage: CHRONIC
     Route: 048
  7. ASPIRIN. [Concomitant]
     Active Substance: ASPIRIN
  8. PULMICORT TURBUHALER [Concomitant]
     Active Substance: BUDESONIDE
  9. NEXIUM [Concomitant]
     Active Substance: ESOMEPRAZOLE MAGNESIUM
  10. TRICOR [Concomitant]
     Active Substance: FENOFIBRATE

REACTIONS (4)
  - Hypoglycaemia [None]
  - Diarrhoea [None]
  - Pneumonia [None]
  - Acute kidney injury [None]

NARRATIVE: CASE EVENT DATE: 20151122
